FAERS Safety Report 4373264-0 (Version None)
Quarter: 2004Q2

REPORT INFORMATION
  Report Type: 
  Country: None (occurrence: None)
  Receive Date: 20040608
  Receipt Date: 20040521
  Transmission Date: 20050107
  Serious: Yes (Other)
  Sender: FDA-Public Use
  Company Number: CN-GLAXOSMITHKLINE-B0333903A

PATIENT
  Age: 62 Year
  Sex: Male
  Weight: 80 kg

DRUGS (3)
  1. AVANDIA [Suspect]
     Dosage: 4MG TWICE PER DAY
     Route: 048
     Dates: start: 20031214, end: 20040508
  2. GLUCOPHAGE [Concomitant]
     Indication: INSULIN RESISTANCE
     Dosage: 1400MG PER DAY
     Route: 048
     Dates: start: 20030414
  3. INSULIN [Concomitant]
     Dosage: 850NG TWICE PER DAY
     Route: 058
     Dates: start: 20020305

REACTIONS (4)
  - ANAEMIA [None]
  - HYPOPROTEINAEMIA [None]
  - MACULAR OEDEMA [None]
  - VISUAL ACUITY REDUCED [None]
